FAERS Safety Report 7180152-3 (Version None)
Quarter: 2010Q4

REPORT INFORMATION
  Report Type: 
  Country: None (occurrence: None)
  Receive Date: 20101221
  Receipt Date: 20101214
  Transmission Date: 20110411
  Serious: No
  Sender: FDA-Public Use
  Company Number: US-PFIZER INC-2010173818

PATIENT
  Age: 57 Year
  Sex: Female

DRUGS (3)
  1. ADVIL [Suspect]
     Indication: BACK PAIN
     Dosage: 1 DF, EVERY FOUR HOURS
     Route: 048
     Dates: start: 20101213
  2. ADVIL [Suspect]
     Indication: HEADACHE
  3. ESTRING [Concomitant]

REACTIONS (1)
  - DRUG INEFFECTIVE [None]
